FAERS Safety Report 7532491-1 (Version None)
Quarter: 2011Q2

REPORT INFORMATION
  Report Type: 
  Country: None (occurrence: None)
  Receive Date: 20110608
  Receipt Date: 20110526
  Transmission Date: 20111010
  Serious: Yes (Hospitalization, Other)
  Sender: FDA-Public Use
  Company Number: PHHY2011JP26971

PATIENT
  Sex: Male
  Weight: 64 kg

DRUGS (10)
  1. ADALAT CC [Concomitant]
     Indication: HYPERTENSION
     Dosage: 40 MG, UNK
     Dates: start: 20090831
  2. PLETAL [Concomitant]
     Dosage: 100 MG, UNK
  3. ALOSENN [Concomitant]
     Dosage: 0.5 G, UNK
  4. ALISKIREN [Suspect]
     Dosage: 150 MG, UNK
     Route: 048
     Dates: start: 20100315, end: 20110109
  5. OLMESARTAN MEDOXOMIL [Concomitant]
     Indication: HYPERTENSION
     Dosage: 40 MG, UNK
     Dates: start: 20080418
  6. LIVALO KOWA [Concomitant]
     Dosage: 1 MG, UNK
  7. ALISKIREN [Suspect]
     Dosage: 300 MG, UNK
     Route: 048
     Dates: start: 20110110, end: 20110228
  8. CARVEDILOL [Concomitant]
     Indication: HYPERTENSION
     Dosage: 10 MG, UNK
  9. FOSRENOL [Concomitant]
     Dosage: 1000 MG, UNK
  10. RABEPRAZOLE SODIUM [Concomitant]
     Indication: HYPERTENSION
     Dosage: 10 MG, UNK

REACTIONS (3)
  - BLOOD PRESSURE INCREASED [None]
  - BLOOD CREATININE INCREASED [None]
  - BRAIN STEM INFARCTION [None]
